FAERS Safety Report 11645638 (Version 1)
Quarter: 2015Q4

REPORT INFORMATION
  Report Type: Not Available
  Country: US (occurrence: US)
  Receive Date: 20151020
  Receipt Date: 20151020
  Transmission Date: 20160304
  Serious: No
  Sender: FDA-Public Use
  Company Number: US-3M-2015-US-000269

PATIENT
  Age: 71 Year
  Sex: Male

DRUGS (1)
  1. PERIDEX [Suspect]
     Active Substance: CHLORHEXIDINE GLUCONATE
     Route: 048

REACTIONS (2)
  - Mouth injury [Recovered/Resolved]
  - Tongue discolouration [Recovered/Resolved]
